FAERS Safety Report 9592214 (Version 1)
Quarter: 2013Q4

REPORT INFORMATION
  Report Type: Spontaneous
  Country: FR (occurrence: FR)
  Receive Date: 20131004
  Receipt Date: 20131004
  Transmission Date: 20140711
  Serious: Yes (Hospitalization, Other)
  Sender: FDA-Public Use
  Company Number: FR-009507513-1309FRA014133

PATIENT
  Age: 59 Year
  Sex: Male

DRUGS (9)
  1. VELMETIA [Suspect]
     Indication: PRODUCT USED FOR UNKNOWN INDICATION
     Dosage: 2 DF, QD
     Route: 048
     Dates: end: 20130523
  2. COVERSYL (PERINDOPRIL ERBUMINE) [Concomitant]
     Dosage: UNK
     Dates: end: 20130523
  3. GLUCOPHAGE [Concomitant]
     Dosage: UNK
     Dates: end: 20130523
  4. PROFENID [Concomitant]
     Dosage: UNK
     Dates: start: 201305, end: 20130523
  5. DIAMICRON [Concomitant]
     Dosage: UNK
     Dates: end: 20130523
  6. KARDEGIC [Concomitant]
  7. PLAVIX [Concomitant]
     Dosage: UNK
  8. SECTRAL [Concomitant]
     Dosage: UNK
  9. CRESTOR [Concomitant]

REACTIONS (4)
  - Metabolic acidosis [Recovered/Resolved]
  - Renal failure acute [Recovered/Resolved]
  - Blood lactic acid increased [Recovered/Resolved]
  - Hyperkalaemia [Recovered/Resolved]
